FAERS Safety Report 11359356 (Version 1)
Quarter: 2015Q3

REPORT INFORMATION
  Report Type: Spontaneous
  Country: US (occurrence: None)
  Receive Date: 20150807
  Receipt Date: 20150807
  Transmission Date: 20151125
  Serious: Yes (Other)
  Sender: FDA-Public Use
  Company Number: None

PATIENT
  Age: 69 Year
  Sex: Female
  Weight: 78.02 kg

DRUGS (7)
  1. VALERIUM [Concomitant]
  2. HERBS [Concomitant]
     Active Substance: HERBALS
  3. ATIVAN [Concomitant]
     Active Substance: LORAZEPAM
  4. HALOPERIDOL. [Suspect]
     Active Substance: HALOPERIDOL
     Indication: ANXIETY
     Dosage: NIGHT
     Route: 048
     Dates: start: 1980, end: 2015
  5. MELATONIN [Concomitant]
     Active Substance: MELATONIN
  6. PASSON FLOWER [Concomitant]
  7. OHANUUS + MINERALS [Concomitant]

REACTIONS (1)
  - Tardive dyskinesia [None]

NARRATIVE: CASE EVENT DATE: 20150610
